FAERS Safety Report 18081498 (Version 2)
Quarter: 2020Q3

REPORT INFORMATION
  Report Type: Spontaneous
  Country: JP (occurrence: US)
  Receive Date: 20200728
  Receipt Date: 20200729
  Transmission Date: 20201103
  Serious: Yes (Hospitalization)
  Sender: FDA-Public Use
  Company Number: JP-LEADIANT BIOSCIENCES, INC.-2020STPI000295

PATIENT
  Age: 3 Year
  Sex: Female

DRUGS (11)
  1. REVCOVI [Suspect]
     Active Substance: ELAPEGADEMASE-LVLR
     Indication: COMBINED IMMUNODEFICIENCY
     Dosage: UNK
     Route: 030
     Dates: start: 20160406, end: 20190326
  2. BAKTAR [Concomitant]
     Active Substance: SULFAMETHOXAZOLE\TRIMETHOPRIM
  3. ZINC OXIDE SIMPLE OINTMENT [Concomitant]
     Active Substance: ZINC OXIDE
  4. VFEND [Concomitant]
     Active Substance: VORICONAZOLE
  5. HIRUDOID [Concomitant]
     Active Substance: GLYCOSAMINOGLYCANS
  6. ENEVO [Concomitant]
  7. REVCOVI [Suspect]
     Active Substance: ELAPEGADEMASE-LVLR
     Dosage: 0.22 MG/KG OF BODY WEIGHT (1.5 ML) WEEKLY
     Route: 030
     Dates: start: 20190605
  8. REVCOVI [Suspect]
     Active Substance: ELAPEGADEMASE-LVLR
     Dosage: 0.233 MG/KG OF BODY WEIGHT WEEKLY
     Route: 030
     Dates: start: 20190402, end: 20190529
  9. WHITE PETROLEUM [Concomitant]
     Active Substance: PETROLATUM
  10. ENSURE H [Concomitant]
     Active Substance: CARBOHYDRATES\FATTY ACIDS\MINERALS\PROTEIN\VITAMINS
  11. HIZENTRA [Concomitant]
     Active Substance: HUMAN IMMUNOGLOBULIN G

REACTIONS (2)
  - Pneumonia [Recovered/Resolved]
  - Pneumonia [Recovered/Resolved]

NARRATIVE: CASE EVENT DATE: 20190913
